FAERS Safety Report 6745161-4 (Version None)
Quarter: 2010Q2

REPORT INFORMATION
  Report Type: 
  Country: None (occurrence: None)
  Receive Date: 20100526
  Receipt Date: 20100428
  Transmission Date: 20101027
  Serious: Yes (Other)
  Sender: FDA-Public Use
  Company Number: 2010SP024806

PATIENT
  Sex: Female

DRUGS (1)
  1. TICE BCG [Suspect]
     Indication: DRUG USE FOR UNKNOWN INDICATION
     Dates: end: 20091201

REACTIONS (3)
  - DEVICE DISLOCATION [None]
  - HYSTERECTOMY [None]
  - MICTURITION URGENCY [None]
